FAERS Safety Report 9250447 (Version 1)
Quarter: 2013Q1

REPORT INFORMATION
  Report Type: Spontaneous
  Country: US (occurrence: None)
  Receive Date: 20130305
  Receipt Date: 20130305
  Transmission Date: 20140127
  Serious: Yes (Hospitalization)
  Sender: FDA-Public Use
  Company Number: 163-21880-12040619

PATIENT
  Sex: Male

DRUGS (3)
  1. REVLIMID (LENALIDOMIDE) (25 MILLIGRAM, CAPSULES) [Suspect]
     Indication: PLASMA CELL MYELOMA
     Dosage: 12/2010 - ONGOING, CAPSULE, 25 MG, 1-21D, PO
  2. DECADRON (DEXAMETHASONE) [Concomitant]
  3. ZITHROMAX [Concomitant]

REACTIONS (2)
  - Blood count abnormal [None]
  - Pneumonia [None]
